FAERS Safety Report 9201457 (Version 3)
Quarter: 2013Q2

REPORT INFORMATION
  Report Type: Spontaneous
  Country: IT (occurrence: IT)
  Receive Date: 20130401
  Receipt Date: 20130427
  Transmission Date: 20140414
  Serious: Yes (Hospitalization, Other)
  Sender: FDA-Public Use
  Company Number: IT-PFIZER INC-2013101371

PATIENT
  Age: 26 Year
  Sex: Female

DRUGS (2)
  1. LYRICA [Suspect]
     Dosage: 8 DOSAGE UNITS, TOTAL DOSE
     Route: 048
     Dates: start: 20130306, end: 20130306
  2. EN [Concomitant]
     Indication: ANXIETY
     Dosage: 30 DROPS AS NEEDED
     Route: 048
     Dates: start: 20120601, end: 20130325

REACTIONS (3)
  - Intentional overdose [Unknown]
  - Suicide attempt [Unknown]
  - Sopor [Recovered/Resolved]
